FAERS Safety Report 9147490 (Version 1)
Quarter: 2013Q1

REPORT INFORMATION
  Report Type: Spontaneous
  Country: US (occurrence: US)
  Receive Date: 20130307
  Receipt Date: 20130307
  Transmission Date: 20140127
  Serious: Yes (Other)
  Sender: FDA-Public Use
  Company Number: US-ASTRAZENECA-2013SE13922

PATIENT
  Age: 53 Year
  Sex: Female
  Weight: 58.1 kg

DRUGS (34)
  1. ARIMIDEX [Suspect]
     Indication: BREAST CANCER METASTATIC
     Route: 048
     Dates: start: 201203
  2. TAMOXIFEN [Suspect]
     Indication: BREAST CANCER
     Route: 048
     Dates: start: 200010, end: 200510
  3. XANAX [Suspect]
     Indication: ANXIETY
     Route: 065
     Dates: start: 201203
  4. XANAX [Suspect]
     Indication: ANXIETY
     Dosage: HALF OF 5 MG (2.5 MG) AS REQUIRED
     Route: 065
  5. AVONEX [Suspect]
     Indication: MULTIPLE SCLEROSIS
     Route: 065
     Dates: start: 2003, end: 2005
  6. CYMBALTA [Concomitant]
     Indication: HOT FLUSH
     Dates: start: 2010, end: 2011
  7. CYMBALTA [Concomitant]
     Indication: MULTIPLE SCLEROSIS
     Dates: start: 2010, end: 2011
  8. CYMBALTA [Concomitant]
     Indication: HOT FLUSH
     Dates: start: 201203
  9. CYMBALTA [Concomitant]
     Indication: MULTIPLE SCLEROSIS
     Dates: start: 201203
  10. XGEVA [Concomitant]
     Indication: SUPPLEMENTATION THERAPY
     Dosage: UNK MONTH
     Route: 050
     Dates: start: 201203
  11. ZEGRID [Concomitant]
     Indication: GASTROOESOPHAGEAL REFLUX DISEASE
  12. NEURONTIN [Concomitant]
     Indication: RESTLESS LEGS SYNDROME
  13. KLONOPIN [Concomitant]
     Indication: RESTLESS LEGS SYNDROME
  14. ZINC [Concomitant]
     Indication: AMNESIA
  15. FOLIC ACID [Concomitant]
     Indication: AMNESIA
  16. VITAMIN D3 [Concomitant]
     Indication: VITAMIN D DECREASED
     Dosage: 3000 U TWO TIMES A DAY
  17. VITAMIN D3 [Concomitant]
     Indication: VITAMIN D DECREASED
     Dosage: 3000 U THREE TIMES A DAY
  18. CALCIUM [Concomitant]
     Indication: MINERAL SUPPLEMENTATION
  19. MULTIVITAMIN WITH LUTEAN AND LYCOPENE [Concomitant]
     Indication: VITAMIN SUPPLEMENTATION
  20. GINGER ROOT [Concomitant]
     Indication: THERAPY CHANGE
     Dates: start: 201106
  21. MAGNESIUM [Concomitant]
     Indication: THERAPY CHANGE
     Dates: start: 201206
  22. REGLAN [Concomitant]
     Indication: IMPAIRED GASTRIC EMPTYING
     Dosage: UNK UNK
     Dates: start: 201105, end: 201106
  23. VITAMIN C [Concomitant]
  24. FISH OIL WITH 300 MG OMEGA 3 [Concomitant]
     Dates: start: 2012
  25. CINNAMON [Concomitant]
     Indication: GENERAL PHYSICAL HEALTH DETERIORATION
     Dates: start: 2012
  26. BEET ROOT [Concomitant]
     Indication: NEOPLASM MALIGNANT
     Dates: start: 2012
  27. VICODIN [Concomitant]
     Indication: BACK PAIN
     Dosage: 5 AND 500  MG PRN
     Dates: start: 201101
  28. MOTRIN [Concomitant]
     Indication: BACK PAIN
  29. TYLENOL [Concomitant]
     Indication: BACK PAIN
  30. COPAXONE [Concomitant]
  31. REBIF [Concomitant]
     Dosage: 11
  32. REBIF [Concomitant]
     Dosage: 22
  33. REBIF [Concomitant]
     Dosage: 44
  34. REBIF [Concomitant]
     Dosage: 11
     Dates: end: 2010

REACTIONS (13)
  - Breast cancer recurrent [Unknown]
  - Metastases to bone [Unknown]
  - Multiple sclerosis [Unknown]
  - Hemiparesis [Unknown]
  - Back pain [Unknown]
  - Back pain [Unknown]
  - Weight decreased [Unknown]
  - Vitamin D decreased [Unknown]
  - Anxiety [Unknown]
  - Restless legs syndrome [Unknown]
  - Gait disturbance [Unknown]
  - Therapeutic response unexpected [Unknown]
  - Therapeutic response unexpected [Unknown]
